FAERS Safety Report 10726461 (Version 2)
Quarter: 2015Q1

REPORT INFORMATION
  Report Type: Spontaneous
  Country: US (occurrence: US)
  Receive Date: 20150121
  Receipt Date: 20150126
  Transmission Date: 20150721
  Serious: Yes (Life-Threatening, Disabling, Other)
  Sender: FDA-Public Use
  Company Number: US-009507513-1501USA006324

PATIENT
  Age: 61 Year
  Sex: Male
  Weight: 77.98 kg

DRUGS (4)
  1. REBETOL [Suspect]
     Active Substance: RIBAVIRIN
     Indication: LIVER DISORDER
     Dosage: 200 CAP (CAPSULES), PILLS SWALLOWED WITH WATER ,12 PILLS EVERYDAY
     Route: 048
     Dates: start: 201204, end: 201211
  2. PEGINTRON [Suspect]
     Active Substance: PEGINTERFERON ALFA-2B
     Indication: LIVER DISORDER
     Dosage: 120 MICROGRAM, QW
     Dates: start: 201204, end: 201211
  3. PEGINTRON [Suspect]
     Active Substance: PEGINTERFERON ALFA-2B
     Indication: DRUG PRESCRIBING ERROR
  4. VICTRELIS [Suspect]
     Active Substance: BOCEPREVIR
     Indication: LIVER DISORDER
     Dosage: 200 MG PILLS SWALLOWED WITH WATER 12 PILLS EVERYDAY
     Route: 048
     Dates: start: 201204, end: 201211

REACTIONS (7)
  - Scratch [Unknown]
  - Dyspnoea [Unknown]
  - Alopecia [Unknown]
  - Abdominal pain [Not Recovered/Not Resolved]
  - Abdominal discomfort [Not Recovered/Not Resolved]
  - Fatigue [Unknown]
  - Neck pain [Unknown]
